FAERS Safety Report 15565081 (Version 1)
Quarter: 2018Q4

REPORT INFORMATION
  Report Type: Spontaneous
  Country: US (occurrence: US)
  Receive Date: 20181024
  Receipt Date: 20181024
  Transmission Date: 20190205
  Serious: No
  Sender: FDA-Public Use
  Company Number: None

PATIENT
  Age: 56 Year
  Sex: Female

DRUGS (1)
  1. DALFAMPRIDINE 10 MG ER TAB [Suspect]
     Active Substance: DALFAMPRIDINE
     Route: 048
     Dates: start: 20171001

REACTIONS (4)
  - Gait disturbance [None]
  - Condition aggravated [None]
  - Muscle fatigue [None]
  - Product dose omission [None]

NARRATIVE: CASE EVENT DATE: 20181023
